FAERS Safety Report 18246388 (Version 3)
Quarter: 2020Q3

REPORT INFORMATION
  Report Type: Spontaneous
  Country: DE (occurrence: DE)
  Receive Date: 20200909
  Receipt Date: 20200916
  Transmission Date: 20201103
  Serious: Yes (Life-Threatening, Hospitalization, Other)
  Sender: FDA-Public Use
  Company Number: DE-PFIZER INC-2020343112

PATIENT
  Age: 17 Year
  Sex: Male

DRUGS (6)
  1. METHYLPREDNISOLONE. [Suspect]
     Active Substance: METHYLPREDNISOLONE
     Indication: AUTOIMMUNE ENCEPHALOPATHY
     Dosage: UNK
  2. LEVETIRACETAM. [Concomitant]
     Active Substance: LEVETIRACETAM
     Indication: AUTOIMMUNE ENCEPHALOPATHY
     Dosage: UNK
  3. NOREPINEPHRINE. [Suspect]
     Active Substance: NOREPINEPHRINE
     Indication: CARDIOVASCULAR DISORDER
     Dosage: UNK
  4. PROPOFOL. [Suspect]
     Active Substance: PROPOFOL
     Indication: STATUS EPILEPTICUS
     Dosage: 10 MG/KG (FREQ:1 H;10 MG/KGBW/H BEING ADMINISTERED INTERMITTENTLY)
  5. PROPOFOL. [Suspect]
     Active Substance: PROPOFOL
     Indication: ANAESTHESIA
     Dosage: 9 MG/KG(MAXIMUM DOSE OF 9 MG/KG BW/H)
  6. VALPROIC ACID. [Concomitant]
     Active Substance: VALPROIC ACID
     Indication: AUTOIMMUNE ENCEPHALOPATHY
     Dosage: UNK

REACTIONS (6)
  - Propofol infusion syndrome [Unknown]
  - Acute kidney injury [Unknown]
  - Overdose [Unknown]
  - Intensive care unit acquired weakness [Unknown]
  - Rhabdomyolysis [Unknown]
  - Drug intolerance [Unknown]
